FAERS Safety Report 7954487-8 (Version None)
Quarter: 2011Q4

REPORT INFORMATION
  Report Type: 
  Country: None (occurrence: None)
  Receive Date: 20111202
  Receipt Date: 20111123
  Transmission Date: 20120403
  Serious: Yes (Hospitalization)
  Sender: FDA-Public Use
  Company Number: CA-JNJFOC-20111106776

PATIENT
  Sex: Male
  Weight: 76 kg

DRUGS (1)
  1. REMICADE [Suspect]
     Indication: CROHN'S DISEASE
     Route: 042
     Dates: start: 20111011

REACTIONS (3)
  - VOMITING [None]
  - ABDOMINAL PAIN [None]
  - NAUSEA [None]
